FAERS Safety Report 5804027-4 (Version None)
Quarter: 2008Q3

REPORT INFORMATION
  Report Type: 
  Country: None (occurrence: None)
  Receive Date: 20080707
  Receipt Date: 20080624
  Transmission Date: 20090109
  Serious: Yes (Death)
  Sender: FDA-Public Use
  Company Number: GXKR2008GB05909

PATIENT
  Age: 76 Year
  Sex: Female

DRUGS (11)
  1. WARFARIN SODIUM [Suspect]
     Indication: PULMONARY EMBOLISM
  2. REMIFENTANIL (REMIFENTANIL) [Concomitant]
  3. PROPOFOL [Concomitant]
  4. ATRACURIUM BESYLATE [Concomitant]
  5. MIDAZOLAM HCL [Concomitant]
  6. TEICOPLANIN (TEICOPLANIN) [Concomitant]
  7. EPHEDRINE SUL CAP [Concomitant]
  8. ZOFRAN [Concomitant]
  9. DIAMORPHINE (DIAMORPHINE) [Concomitant]
  10. SIMVASTATIN [Concomitant]
  11. ATENOLOL [Concomitant]

REACTIONS (8)
  - CEREBRAL HYPERPERFUSION SYNDROME [None]
  - CONVULSION [None]
  - FACIAL SPASM [None]
  - HAEMORRHAGE INTRACRANIAL [None]
  - HEADACHE [None]
  - HYPERTENSION [None]
  - MUSCLE SPASMS [None]
  - UNRESPONSIVE TO STIMULI [None]
